FAERS Safety Report 9674687 (Version 1)
Quarter: 2013Q4

REPORT INFORMATION
  Report Type: Spontaneous
  Country: US (occurrence: None)
  Receive Date: 20131106
  Receipt Date: 20131106
  Transmission Date: 20140711
  Serious: Yes (Hospitalization)
  Sender: FDA-Public Use
  Company Number: None

PATIENT
  Age: 34 Year
  Sex: Female
  Weight: 72.58 kg

DRUGS (1)
  1. LYSTEDA 650MG FERRING PHARMACEUTICALS [Suspect]
     Indication: MENORRHAGIA
     Dosage: 2 PILLS THREE TIMES A DAY TAKEN BY MOUTH
     Dates: start: 20131013, end: 20131014

REACTIONS (17)
  - Nausea [None]
  - Headache [None]
  - Tremor [None]
  - Tremor [None]
  - Posture abnormal [None]
  - Tremor [None]
  - Dyspnoea [None]
  - Communication disorder [None]
  - Vision blurred [None]
  - Muscle fatigue [None]
  - Hemiparesis [None]
  - Chest discomfort [None]
  - Disturbance in attention [None]
  - Activities of daily living impaired [None]
  - Impaired driving ability [None]
  - Gait disturbance [None]
  - Musculoskeletal disorder [None]
